FAERS Safety Report 7316009-4 (Version None)
Quarter: 2011Q1

REPORT INFORMATION
  Report Type: 
  Country: None (occurrence: None)
  Receive Date: 20110225
  Receipt Date: 20110216
  Transmission Date: 20110831
  Serious: Yes (Hospitalization)
  Sender: FDA-Public Use
  Company Number: PHHO2011US03127

PATIENT
  Sex: Male
  Weight: 111.8 kg

DRUGS (4)
  1. AFINITOR [Suspect]
     Indication: GLIOBLASTOMA
     Dosage: 70 MG, QW
     Route: 048
     Dates: start: 20110117, end: 20110207
  2. TEMOZOLOMIDE [Suspect]
     Indication: GLIOBLASTOMA
     Dosage: 75 MG/M2, QW
     Route: 048
     Dates: start: 20110117, end: 20110207
  3. RADIATION THERAPY [Suspect]
     Indication: GLIOBLASTOMA
     Dosage: UNK
  4. DECADRON [Concomitant]

REACTIONS (2)
  - HEMIPARESIS [None]
  - FALL [None]
